FAERS Safety Report 17205528 (Version 1)
Quarter: 2019Q4

REPORT INFORMATION
  Report Type: Report from Study
  Country: None (occurrence: US)
  Receive Date: 20191227
  Receipt Date: 20191227
  Transmission Date: 20200122
  Serious: Yes (Other)
  Sender: FDA-Public Use
  Company Number: US-ABBVIE-19K-163-3209021-00

PATIENT
  Sex: Male

DRUGS (1)
  1. HUMIRA [Suspect]
     Active Substance: ADALIMUMAB
     Indication: PSORIATIC ARTHROPATHY
     Route: 058
     Dates: end: 201911

REACTIONS (8)
  - Diabetes mellitus [Unknown]
  - Fall [Unknown]
  - Acquired immunodeficiency syndrome [Unknown]
  - Tremor [Unknown]
  - Cardiac arrest [Unknown]
  - Seizure [Unknown]
  - Pain in extremity [Unknown]
  - Device related sepsis [Unknown]
